FAERS Safety Report 9613510 (Version 1)
Quarter: 2013Q4

REPORT INFORMATION
  Report Type: Spontaneous
  Country: US (occurrence: US)
  Receive Date: 20131010
  Receipt Date: 20131010
  Transmission Date: 20140711
  Serious: No
  Sender: FDA-Public Use
  Company Number: US-BAYER-2013-122858

PATIENT
  Age: 65 Year
  Sex: Male
  Weight: 76.19 kg

DRUGS (2)
  1. ALEVE CAPLET [Suspect]
     Indication: ANALGESIC THERAPY
     Dosage: 2 DF, PRN
     Route: 048
     Dates: start: 2007
  2. ALEVE CAPLET [Suspect]
     Indication: ANALGESIC THERAPY
     Dosage: 4DF ,UNK
     Route: 048
     Dates: start: 201309

REACTIONS (2)
  - Drug ineffective [None]
  - Extra dose administered [None]
